FAERS Safety Report 8488056 (Version 6)
Quarter: 2013Q1

REPORT INFORMATION
  Report Type: Spontaneous
  Country: US (occurrence: US)
  Receive Date: 20120402
  Receipt Date: 20130328
  Transmission Date: 20140127
  Serious: Yes (Life-Threatening, Hospitalization, Other)
  Sender: FDA-Public Use
  Company Number: CHPA2012US005799

PATIENT
  Age: 37 None
  Sex: Female

DRUGS (23)
  1. EXCEDRIN MIGRAINE [Suspect]
     Indication: MIGRAINE
     Dosage: 1 DF, Q8H
     Route: 048
     Dates: start: 2007, end: 201201
  2. CARAFATE [Concomitant]
     Dosage: UNK
     Dates: start: 2007
  3. PROTONIX ^PHARMACIA^ [Concomitant]
     Dosage: 40 MG, BID
  4. PREVACID [Concomitant]
     Dosage: UNK
     Dates: start: 2007
  5. BUPRENORPHINE W/NALOXONE [Concomitant]
     Dosage: 2 DF, QD
     Route: 048
  6. BUPRENORPHINE W/NALOXONE [Concomitant]
     Dosage: 1 DF, UNK
     Route: 048
  7. BUPROPION HCL [Concomitant]
     Dosage: 150 MG, BID
     Route: 048
  8. BUPROPION HCL [Concomitant]
     Dosage: 10 MG, TID
  9. CLOTRIMAZOLE [Concomitant]
     Dosage: UNK, BID
     Route: 061
  10. CYANOCOBALAMIN [Concomitant]
     Dosage: 1000 UG, QMO
     Route: 030
  11. CYCLOBENZAPRINE HYDROCHLORIDE [Concomitant]
     Indication: MUSCLE SPASMS
     Dosage: 10 MG, QD
     Route: 048
  12. IBUPROFEN [Concomitant]
     Indication: PAIN
     Dosage: 600 MG, PRN
     Route: 048
  13. IBUPROFEN [Concomitant]
     Indication: INFLAMMATION
  14. LIDOCAINE [Concomitant]
     Dosage: 3 DF, Q12H
     Route: 062
  15. PHENAZOPYRIDINE HCL [Concomitant]
     Indication: BLADDER DISORDER
     Dosage: 100 MG, UNK
     Route: 048
  16. PROPRANOLOL HCL [Concomitant]
     Indication: PANIC ATTACK
     Dosage: 2 DF, UNK
     Route: 048
  17. RIBOFLAVIN [Concomitant]
     Indication: PROPHYLAXIS
     Dosage: 100 MG, QD
     Route: 048
  18. SODIUM FUORIDE [Concomitant]
  19. MULTIVITAMINES AND MINERALS [Concomitant]
     Dosage: 1 UNK, UNK
     Route: 048
  20. TOPIRAMATE [Concomitant]
     Dosage: 1 DF, QD
  21. TOPIRAMATE [Concomitant]
     Dosage: 3 DF, QD
     Route: 048
  22. VENLAFAXINE HYDROCHLORIDE [Concomitant]
     Dosage: 4 DF, QD
     Route: 048
  23. VENLAFAXINE HYDROCHLORIDE [Concomitant]
     Dosage: 1 DF, QD
     Route: 048

REACTIONS (12)
  - Intestinal perforation [Recovered/Resolved]
  - Gallbladder disorder [Unknown]
  - Haemorrhage [Unknown]
  - Inflammation [Unknown]
  - Dyspepsia [Unknown]
  - Abdominal pain [Recovered/Resolved]
  - Fatigue [Not Recovered/Not Resolved]
  - Back disorder [Not Recovered/Not Resolved]
  - Abdominal distension [Recovered/Resolved]
  - Abdominal tenderness [Unknown]
  - White blood cell count increased [Unknown]
  - Underdose [Unknown]
